FAERS Safety Report 9503817 (Version 1)
Quarter: 2013Q3

REPORT INFORMATION
  Report Type: Spontaneous
  Country: CH (occurrence: CH)
  Receive Date: 20130906
  Receipt Date: 20130906
  Transmission Date: 20140515
  Serious: Yes (Hospitalization)
  Sender: FDA-Public Use
  Company Number: CH-JNJFOC-20130902292

PATIENT
  Age: 69 Year
  Sex: Male

DRUGS (6)
  1. XARELTO [Suspect]
     Indication: PULMONARY EMBOLISM
     Route: 048
  2. XARELTO [Suspect]
     Indication: PULMONARY EMBOLISM
     Route: 048
     Dates: start: 20130620, end: 20130712
  3. TAMSULOSIN [Concomitant]
     Route: 065
     Dates: start: 20130620
  4. ATORVASTATIN [Concomitant]
     Route: 065
     Dates: start: 20130620
  5. LOGIMAX [Concomitant]
     Dosage: DOSE: 10MG/95MG
     Route: 065
  6. VOTUM [Concomitant]
     Route: 065

REACTIONS (2)
  - Bladder disorder [Recovered/Resolved]
  - Haematuria [Recovered/Resolved]
